FAERS Safety Report 15812304 (Version 2)
Quarter: 2019Q3

REPORT INFORMATION
  Report Type: Spontaneous
  Country: US (occurrence: US)
  Receive Date: 20190111
  Receipt Date: 20190813
  Transmission Date: 20191004
  Serious: No
  Sender: FDA-Public Use
  Company Number: US-MYLANLABS-2018M1097051

PATIENT
  Sex: Female
  Weight: 47 kg

DRUGS (1)
  1. ESTRADIOL TRANSDERMAL SYSTEM [Suspect]
     Active Substance: ESTRADIOL
     Indication: HOT FLUSH
     Dosage: 0.025 MILLIGRAM
     Route: 062

REACTIONS (2)
  - Hot flush [Recovered/Resolved]
  - Product adhesion issue [Unknown]
